FAERS Safety Report 7555976-0 (Version None)
Quarter: 2011Q2

REPORT INFORMATION
  Report Type: 
  Country: None (occurrence: None)
  Receive Date: 20110619
  Receipt Date: 20110607
  Transmission Date: 20111010
  Serious: Yes (Hospitalization, Other)
  Sender: FDA-Public Use
  Company Number: US-ELI_LILLY_AND_COMPANY-US201006003992

PATIENT
  Sex: Female

DRUGS (9)
  1. FORTEO [Suspect]
     Indication: OSTEOPOROSIS
     Dosage: 20 UG, DAILY (1/D)
     Route: 058
     Dates: start: 20100506
  2. ANALGESICS [Concomitant]
  3. IBUPROFEN [Concomitant]
  4. FORTEO [Suspect]
     Dosage: 20 UG, QD
     Route: 058
  5. AMBIEN [Concomitant]
     Dosage: 10 MG, AS NEEDED
     Route: 048
  6. FORTEO [Suspect]
     Dosage: 20 UG, QD
     Route: 058
  7. HYDROCODONE [Concomitant]
  8. ESTRACE [Concomitant]
     Dosage: UNK, 2/W
     Route: 067
  9. VICODIN [Concomitant]

REACTIONS (9)
  - INJURY [None]
  - INJECTION SITE HAEMATOMA [None]
  - FEELING ABNORMAL [None]
  - NAUSEA [None]
  - BONE DENSITY DECREASED [None]
  - MALAISE [None]
  - UNDERDOSE [None]
  - DRUG INEFFECTIVE [None]
  - PELVIC FRACTURE [None]
